FAERS Safety Report 13403403 (Version 6)
Quarter: 2018Q1

REPORT INFORMATION
  Report Type: Report from Study
  Country: US (occurrence: US)
  Receive Date: 20170404
  Receipt Date: 20180322
  Transmission Date: 20180508
  Serious: Yes (Other)
  Sender: FDA-Public Use
  Company Number: US-JAZZ-2017-US-003813

PATIENT
  Age: 29 Year
  Sex: Male

DRUGS (28)
  1. MODAFINIL. [Concomitant]
     Active Substance: MODAFINIL
  2. HYDROCHLOROTHIAZIDE. [Concomitant]
     Active Substance: HYDROCHLOROTHIAZIDE
  3. LEVOTHYROXINE. [Concomitant]
     Active Substance: LEVOTHYROXINE
  4. FERROUS SULFATE. [Concomitant]
     Active Substance: FERROUS SULFATE
  5. XYREM [Suspect]
     Active Substance: SODIUM OXYBATE
     Dosage: 3.5 G, BID
     Route: 048
  6. VITAMIN B12 [Concomitant]
     Active Substance: CYANOCOBALAMIN
  7. VITAMIN D3 [Concomitant]
     Active Substance: CHOLECALCIFEROL
  8. OLANZAPINE. [Concomitant]
     Active Substance: OLANZAPINE
  9. ESCITALOPRAM [Concomitant]
     Active Substance: ESCITALOPRAM OXALATE
  10. XYREM [Suspect]
     Active Substance: SODIUM OXYBATE
     Indication: NARCOLEPSY
     Dosage: 3.5 G, BID
     Route: 048
     Dates: start: 201505, end: 2015
  11. AMBIEN CR [Concomitant]
     Active Substance: ZOLPIDEM TARTRATE
  12. ATENOLOL. [Concomitant]
     Active Substance: ATENOLOL
  13. NAPROXEN. [Concomitant]
     Active Substance: NAPROXEN
  14. POTASSIUM CITRATE. [Concomitant]
     Active Substance: POTASSIUM CITRATE
  15. TRAMADOL HCL [Concomitant]
     Active Substance: TRAMADOL HYDROCHLORIDE
  16. LISINOPRIL. [Concomitant]
     Active Substance: LISINOPRIL
  17. WELLBUTRIN [Concomitant]
     Active Substance: BUPROPION HYDROCHLORIDE
  18. GABAPENTIN. [Concomitant]
     Active Substance: GABAPENTIN
  19. AMBIEN [Concomitant]
     Active Substance: ZOLPIDEM TARTRATE
  20. LYRICA [Concomitant]
     Active Substance: PREGABALIN
  21. NORCO [Suspect]
     Active Substance: ACETAMINOPHEN\HYDROCODONE BITARTRATE
     Indication: BACK PAIN
  22. TYLENOL WITH CODEINE [Concomitant]
     Active Substance: ACETAMINOPHEN\CODEINE PHOSPHATE
  23. ADDERALL [Concomitant]
     Active Substance: AMPHETAMINE ASPARTATE\AMPHETAMINE SULFATE\DEXTROAMPHETAMINE SACCHARATE\DEXTROAMPHETAMINE SULFATE
  24. STRATTERA [Concomitant]
     Active Substance: ATOMOXETINE HYDROCHLORIDE
  25. ABILIFY [Concomitant]
     Active Substance: ARIPIPRAZOLE
  26. XYREM [Suspect]
     Active Substance: SODIUM OXYBATE
     Indication: INSOMNIA
     Dosage: 4.5 G, BID
     Route: 048
     Dates: start: 201507
  27. LIPITOR [Concomitant]
     Active Substance: ATORVASTATIN CALCIUM
  28. TOPIRAMATE. [Concomitant]
     Active Substance: TOPIRAMATE

REACTIONS (6)
  - Generalised tonic-clonic seizure [Recovered/Resolved]
  - Weight decreased [Unknown]
  - Back pain [Not Recovered/Not Resolved]
  - Extra dose administered [Unknown]
  - Schizoaffective disorder [Recovering/Resolving]
  - Spinal operation [Unknown]

NARRATIVE: CASE EVENT DATE: 201505
